FAERS Safety Report 6293613-6 (Version None)
Quarter: 2009Q3

REPORT INFORMATION
  Report Type: 
  Country: None (occurrence: None)
  Receive Date: 20090729
  Receipt Date: 20090727
  Transmission Date: 20100115
  Serious: Yes (Other)
  Sender: FDA-Public Use
  Company Number: SP02057

PATIENT
  Age: 86 Year
  Sex: Female

DRUGS (16)
  1. VISICOL [Suspect]
     Indication: COLONOSCOPY
     Dosage: 50 GM, ORAL
     Route: 048
     Dates: start: 20080916, end: 20080916
  2. CARVEDILOL [Suspect]
     Dosage: 50 MG, ORAL
     Route: 048
     Dates: start: 20080916, end: 20080916
  3. CANDESARTAN CILEXETIL [Suspect]
  4. SPIRONOLACTONE [Suspect]
  5. LANSOPRAZOLE [Concomitant]
  6. ECABET [Concomitant]
  7. SODIUM ALGINATE [Concomitant]
  8. SENNOSIDE [Concomitant]
  9. DIMETICONE [Concomitant]
  10. LACTOMIN [Concomitant]
  11. FLURBIPROFEN [Concomitant]
  12. ETODOLAC [Concomitant]
  13. IRSOGLADINE MALEATE [Concomitant]
  14. ASPIRIN [Concomitant]
  15. PRAVASTATIN [Concomitant]
  16. ZOPICLONE [Concomitant]

REACTIONS (8)
  - BLOOD PRESSURE DECREASED [None]
  - CHILLS [None]
  - GASTRIC ULCER [None]
  - HYPERPHOSPHATAEMIA [None]
  - HYPOAESTHESIA [None]
  - HYPOCALCAEMIA [None]
  - NEPHROPATHY [None]
  - RENAL FAILURE ACUTE [None]
